FAERS Safety Report 9403245 (Version 1)
Quarter: 2013Q3

REPORT INFORMATION
  Report Type: Spontaneous
  Country: GB (occurrence: None)
  Receive Date: 20130712
  Receipt Date: 20130712
  Transmission Date: 20140515
  Serious: Yes (Death, Life-Threatening, Hospitalization, Other)
  Sender: FDA-Public Use
  Company Number: AUR-APL-2013-05856

PATIENT
  Sex: Female

DRUGS (1)
  1. METFORMIN [Suspect]
     Indication: DIABETES MELLITUS
     Route: 048

REACTIONS (7)
  - Lactic acidosis [None]
  - Circulatory collapse [None]
  - Overdose [None]
  - Multi-organ failure [None]
  - Oliguria [None]
  - Loss of consciousness [None]
  - Dyspnoea [None]
